FAERS Safety Report 6843464-6 (Version None)
Quarter: 2010Q3

REPORT INFORMATION
  Report Type: 
  Country: None (occurrence: None)
  Receive Date: 20100712
  Receipt Date: 20100625
  Transmission Date: 20110219
  Serious: Yes (Other)
  Sender: FDA-Public Use
  Company Number: GB-ACCORD-005582

PATIENT
  Age: 68 Year
  Sex: Male
  Weight: 38 kg

DRUGS (5)
  1. SIMVASTATIN [Suspect]
     Indication: ATRIAL FIBRILLATION
     Dosage: 40.00 MG;
  2. ADIZEM [Concomitant]
  3. ASPIRIN [Concomitant]
  4. CLOPIDOGREL [Concomitant]
  5. RAMIPRIL [Concomitant]

REACTIONS (2)
  - MYALGIA [None]
  - OFF LABEL USE [None]
